FAERS Safety Report 6820264-4 (Version None)
Quarter: 2010Q3

REPORT INFORMATION
  Report Type: 
  Country: None (occurrence: None)
  Receive Date: 20100707
  Receipt Date: 20100629
  Transmission Date: 20110219
  Serious: Yes (Other)
  Sender: FDA-Public Use
  Company Number: DE-PFIZER INC-2010081039

PATIENT
  Age: 77 Year
  Sex: Female

DRUGS (5)
  1. AMLODIPINE BESYLATE [Suspect]
     Indication: HYPERTENSION
  2. PROTHIPENDYL [Interacting]
     Indication: SLEEP DISORDER
  3. HYDROCHLOROTHIAZIDE [Interacting]
     Indication: HYPERTENSION
  4. RAMIPRIL [Interacting]
     Indication: HYPERTENSION
  5. BISOPROLOL [Interacting]
     Indication: HYPERTENSION

REACTIONS (2)
  - DRUG INTERACTION [None]
  - HYPOTENSION [None]
